FAERS Safety Report 4685798-X (Version None)
Quarter: 2005Q2

REPORT INFORMATION
  Report Type: 
  Country: None (occurrence: None)
  Receive Date: 20050606
  Receipt Date: 20050606
  Transmission Date: 20051028
  Serious: No
  Sender: FDA-Public Use
  Company Number: None

PATIENT
  Age: 39 Year
  Sex: Female
  Weight: 80.7403 kg

DRUGS (1)
  1. FACTIVE [Suspect]

REACTIONS (1)
  - SIMILAR REACTION ON PREVIOUS EXPOSURE TO DRUG [None]
